FAERS Safety Report 6579274-7 (Version None)
Quarter: 2010Q1

REPORT INFORMATION
  Report Type: 
  Country: None (occurrence: None)
  Receive Date: 20100203
  Receipt Date: 20100120
  Transmission Date: 20100710
  Serious: Yes (Hospitalization)
  Sender: FDA-Public Use
  Company Number: 231087J09USA

PATIENT
  Age: 47 Year
  Sex: Female

DRUGS (5)
  1. REBIF [Suspect]
     Indication: MULTIPLE SCLEROSIS
     Dosage: 44 MCG, 3 IN 1 WEEKS, SUBCUTANEOUS; 22 MCG, 3 IN 1 WEEKS, SUBCUTANEOUS
     Route: 058
     Dates: start: 20090718, end: 20090701
  2. REBIF [Suspect]
     Indication: MULTIPLE SCLEROSIS
     Dosage: 44 MCG, 3 IN 1 WEEKS, SUBCUTANEOUS; 22 MCG, 3 IN 1 WEEKS, SUBCUTANEOUS
     Route: 058
     Dates: start: 20090701
  3. NORVASC [Concomitant]
  4. ATENOLOL [Concomitant]
  5. MULTIVITAMIN WITH IRON (MULTIVITAMINS PLUS IRON) [Concomitant]

REACTIONS (7)
  - BLOOD IRON DECREASED [None]
  - DIZZINESS [None]
  - FALL [None]
  - FIBULA FRACTURE [None]
  - HYPOTENSION [None]
  - PAIN [None]
  - TIBIA FRACTURE [None]
